FAERS Safety Report 6563568-5 (Version None)
Quarter: 2010Q1

REPORT INFORMATION
  Report Type: 
  Country: None (occurrence: None)
  Receive Date: 20100130
  Receipt Date: 20091216
  Transmission Date: 20100710
  Serious: No
  Sender: FDA-Public Use
  Company Number: US-ABBOTT-09P-163-0615602-00

PATIENT
  Sex: Female
  Weight: 72.64 kg

DRUGS (2)
  1. HUMIRA [Suspect]
     Indication: PSORIASIS
     Dates: start: 20090901
  2. HUMIRA [Suspect]
     Dates: end: 20081201

REACTIONS (3)
  - HYPOTHYROIDISM [None]
  - PRURITUS [None]
  - URTICARIA [None]
